FAERS Safety Report 16359938 (Version 1)
Quarter: 2019Q2

REPORT INFORMATION
  Report Type: Spontaneous
  Country: IT (occurrence: IT)
  Receive Date: 20190528
  Receipt Date: 20190528
  Transmission Date: 20190711
  Serious: Yes (Hospitalization)
  Sender: FDA-Public Use
  Company Number: IT-TEVA-2019-IT-1055855

PATIENT
  Age: 85 Year
  Sex: Male

DRUGS (6)
  1. CALCITRIOLO DOC GENERICI 0,50 MICROGRAMMI CAPSULE MOLLI [Concomitant]
  2. CARDIOASPIRIN 100 MG COMPRESSE GASTRORESISTENTI [Concomitant]
     Active Substance: ASPIRIN
  3. RYTMONORM [Concomitant]
     Active Substance: PROPAFENONE
  4. QUETIAPINA AUROBINDO 25 MG COMPRESSE RIVESTITE CON FILM [Suspect]
     Active Substance: QUETIAPINE FUMARATE
     Indication: PSYCHOTIC DISORDER
     Dosage: 50 MILLIGRAM DAILY;
     Route: 048
     Dates: start: 20150311, end: 20170724
  5. RIVOTRIL [Suspect]
     Active Substance: CLONAZEPAM
     Indication: EPILEPSY
     Dosage: 3 GTT DAILY;
     Route: 048
  6. LAXIPEG 9,7 G POLVERE PER SOLUZIONE ORALE [Concomitant]

REACTIONS (2)
  - Sopor [Recovered/Resolved]
  - Depressed level of consciousness [Recovered/Resolved]

NARRATIVE: CASE EVENT DATE: 20170724
